FAERS Safety Report 12601348 (Version 1)
Quarter: 2016Q3

REPORT INFORMATION
  Report Type: Spontaneous
  Country: US (occurrence: US)
  Receive Date: 20160728
  Receipt Date: 20160728
  Transmission Date: 20161109
  Serious: No
  Sender: FDA-Public Use
  Company Number: US-SUN PHARMACEUTICAL INDUSTRIES LTD-2007US-12234

PATIENT

DRUGS (2)
  1. ISOTRETINOIN [Suspect]
     Active Substance: ISOTRETINOIN
     Indication: ACNE
     Dosage: 30 MG, QD
     Dates: start: 20070405, end: 20070723
  2. ISOTRETINOIN [Suspect]
     Active Substance: ISOTRETINOIN
     Dosage: 60 MG, QD
     Dates: start: 20070405, end: 20070723

REACTIONS (5)
  - Balance disorder [Unknown]
  - Mood altered [Unknown]
  - Crying [Unknown]
  - Anger [Unknown]
  - Dizziness [Unknown]

NARRATIVE: CASE EVENT DATE: 20070616
